FAERS Safety Report 7151821-6 (Version None)
Quarter: 2010Q4

REPORT INFORMATION
  Report Type: 
  Country: None (occurrence: None)
  Receive Date: 20101210
  Receipt Date: 20101130
  Transmission Date: 20110411
  Serious: Yes (Hospitalization)
  Sender: FDA-Public Use
  Company Number: DE-ABBOTT-10P-062-0689055-00

PATIENT
  Sex: Female
  Weight: 52 kg

DRUGS (7)
  1. HUMIRA [Suspect]
     Indication: CROHN'S DISEASE
     Dosage: 80 MG IN WEEK 0; 40 MG IN WEEK 2; 40 MG EOW
     Route: 058
     Dates: start: 20100820, end: 20101020
  2. HUMIRA [Suspect]
     Route: 058
     Dates: start: 20101129
  3. TILIDIN [Concomitant]
     Indication: PRODUCT USED FOR UNKNOWN INDICATION
  4. OPIPRAMOL [Concomitant]
     Indication: PRODUCT USED FOR UNKNOWN INDICATION
  5. PANTOPRAZOLE SODIUM [Concomitant]
     Indication: PRODUCT USED FOR UNKNOWN INDICATION
  6. NATRIUMHYDROGENCARBONAT [Concomitant]
     Indication: PRODUCT USED FOR UNKNOWN INDICATION
  7. DARBEPOETIN ALFA [Concomitant]
     Indication: PRODUCT USED FOR UNKNOWN INDICATION

REACTIONS (1)
  - IMPAIRED HEALING [None]
